FAERS Safety Report 6857355-8 (Version None)
Quarter: 2010Q3

REPORT INFORMATION
  Report Type: 
  Country: None (occurrence: None)
  Receive Date: 20100719
  Receipt Date: 20100709
  Transmission Date: 20110219
  Serious: Yes (Hospitalization)
  Sender: FDA-Public Use
  Company Number: NO-ALLERGAN-1008573US

PATIENT
  Age: 46 Year
  Sex: Female

DRUGS (7)
  1. BOTOX [Suspect]
     Indication: CEREBRAL PALSY
     Dosage: 450 UNITS, SINGLE
     Dates: start: 20091204, end: 20091204
  2. BOTOX [Suspect]
     Indication: ARTHRALGIA
     Dosage: 450 UNITS, SINGLE
     Dates: start: 20090914, end: 20090914
  3. BOTOX [Suspect]
     Indication: MUSCLE SPASTICITY
     Dosage: 450 UNITS, SINGLE
     Dates: start: 20090616, end: 20090616
  4. IBUPROFEN [Concomitant]
     Indication: PRODUCT USED FOR UNKNOWN INDICATION
     Dosage: 1-2 TIMES DAILY
     Route: 048
  5. VIVAL [Concomitant]
     Indication: PRODUCT USED FOR UNKNOWN INDICATION
     Dosage: AS NEEDED
     Route: 048
     Dates: end: 20100115
  6. BACLOFEN [Concomitant]
     Indication: PRODUCT USED FOR UNKNOWN INDICATION
     Dosage: 10MG + 20MG + 10 MG
     Dates: end: 20100115
  7. TOVIAZ [Concomitant]
     Indication: PRODUCT USED FOR UNKNOWN INDICATION
     Dates: end: 20100115

REACTIONS (3)
  - DYSPNOEA [None]
  - MUSCULAR WEAKNESS [None]
  - NECK PAIN [None]
